FAERS Safety Report 18268499 (Version 1)
Quarter: 2020Q3

REPORT INFORMATION
  Report Type: Spontaneous
  Country: US (occurrence: US)
  Receive Date: 20200915
  Receipt Date: 20200915
  Transmission Date: 20201103
  Serious: Yes (Other)
  Sender: FDA-Public Use
  Company Number: US-ELI_LILLY_AND_COMPANY-US202009002911

PATIENT
  Sex: Male

DRUGS (10)
  1. HUMULIN N [Suspect]
     Active Substance: INSULIN HUMAN
     Dosage: 10 U, DAILY (NIGHT)
     Route: 058
     Dates: start: 2018
  2. HUMALOG [Suspect]
     Active Substance: INSULIN LISPRO
     Indication: TYPE 2 DIABETES MELLITUS
     Dosage: 20 U, OTHER (20 UNITS WITH EACH MEAL)
     Route: 058
  3. HUMALOG [Suspect]
     Active Substance: INSULIN LISPRO
     Dosage: 20 U, OTHER (20 UNITS WITH EACH MEAL)
     Route: 058
  4. HUMULIN N [Suspect]
     Active Substance: INSULIN HUMAN
     Indication: TYPE 2 DIABETES MELLITUS
     Dosage: 20 U, EACH MORNING
     Route: 058
     Dates: start: 2018
  5. HUMULIN N [Suspect]
     Active Substance: INSULIN HUMAN
     Dosage: 20 U, EACH MORNING
     Route: 058
  6. HUMULIN N [Suspect]
     Active Substance: INSULIN HUMAN
     Dosage: 20 U, EACH MORNING
     Route: 058
  7. INSULIN [Concomitant]
     Active Substance: INSULIN NOS
     Indication: TYPE 2 DIABETES MELLITUS
  8. HUMALOG [Suspect]
     Active Substance: INSULIN LISPRO
     Dosage: 20 U, OTHER (20 UNITS WITH EACH MEAL)
     Route: 058
  9. HUMULIN N [Suspect]
     Active Substance: INSULIN HUMAN
     Dosage: 10 U, DAILY (NIGHT)
     Route: 058
  10. HUMULIN N [Suspect]
     Active Substance: INSULIN HUMAN
     Dosage: 10 U, DAILY (NIGHT)
     Route: 058

REACTIONS (2)
  - Hypophagia [Not Recovered/Not Resolved]
  - Dementia [Not Recovered/Not Resolved]

NARRATIVE: CASE EVENT DATE: 2016
